FAERS Safety Report 20316471 (Version 9)
Quarter: 2022Q4

REPORT INFORMATION
  Report Type: Report from Study
  Country: JP (occurrence: JP)
  Receive Date: 20220110
  Receipt Date: 20221208
  Transmission Date: 20230113
  Serious: Yes (Life-Threatening, Hospitalization, Other)
  Sender: FDA-Public Use
  Company Number: JP-ASTELLAS-2021JP024271

PATIENT
  Age: 76 Year
  Sex: Male
  Weight: 55.5 kg

DRUGS (11)
  1. ENFORTUMAB VEDOTIN [Suspect]
     Active Substance: ENFORTUMAB VEDOTIN
     Indication: Bladder cancer
     Route: 041
     Dates: start: 20211209, end: 20211223
  2. ENFORTUMAB VEDOTIN [Suspect]
     Active Substance: ENFORTUMAB VEDOTIN
     Indication: Malignant neoplasm of renal pelvis
  3. ENFORTUMAB VEDOTIN [Suspect]
     Active Substance: ENFORTUMAB VEDOTIN
     Indication: Transitional cell carcinoma
  4. PEMBROLIZUMAB [Concomitant]
     Active Substance: PEMBROLIZUMAB
     Indication: Transitional cell carcinoma
     Dosage: UNK UNK, UNKNOWN FREQ.
     Route: 065
     Dates: start: 20210826, end: 20211207
  5. AZOSEMIDE [Concomitant]
     Active Substance: AZOSEMIDE
     Indication: Oedema peripheral
     Route: 048
     Dates: start: 20211201, end: 20211228
  6. DEXAMETHASONE SODIUM PHOSPHATE [Concomitant]
     Active Substance: DEXAMETHASONE SODIUM PHOSPHATE
     Indication: Bladder cancer
     Route: 041
     Dates: start: 20211209, end: 20211223
  7. DEXAMETHASONE SODIUM PHOSPHATE [Concomitant]
     Active Substance: DEXAMETHASONE SODIUM PHOSPHATE
     Indication: Malignant neoplasm of renal pelvis
  8. PREDONINE [Concomitant]
     Active Substance: PREDNISOLONE
     Indication: Drug eruption
     Dosage: 30 MG (MORNING 20 MG, AFTERNOON 10 MG)
     Route: 048
     Dates: start: 20211228, end: 20211231
  9. CLOBETASOL [Concomitant]
     Active Substance: CLOBETASOL
     Indication: Drug eruption
     Dosage: 15 G/4 DAYS
     Route: 050
     Dates: start: 20211228, end: 20211231
  10. AMINO ACIDS, SOURCE UNSPECIFIED [Concomitant]
     Active Substance: AMINO ACIDS, SOURCE UNSPECIFIED
     Indication: Hepatic encephalopathy
     Dosage: UNK UNK, UNKNOWN FREQ.
     Route: 065
     Dates: start: 20211231
  11. AMINO ACIDS, SOURCE UNSPECIFIED [Concomitant]
     Active Substance: AMINO ACIDS, SOURCE UNSPECIFIED
     Dosage: UNK UNK, UNKNOWN FREQ.
     Route: 065
     Dates: start: 20220102

REACTIONS (3)
  - Lacunar infarction [Unknown]
  - Drug eruption [Recovering/Resolving]
  - Hepatic encephalopathy [Unknown]

NARRATIVE: CASE EVENT DATE: 20211228
